FAERS Safety Report 25079996 (Version 1)
Quarter: 2025Q1

REPORT INFORMATION
  Report Type: Spontaneous
  Country: IT (occurrence: IT)
  Receive Date: 20250314
  Receipt Date: 20250314
  Transmission Date: 20250409
  Serious: Yes (Other)
  Sender: MERCK SHARP & DOHME LLC
  Company Number: None

PATIENT
  Age: 33 Year
  Sex: Female

DRUGS (5)
  1. PROQUAD [Suspect]
     Active Substance: MEASLES VIRUS STRAIN ENDERS^ ATTENUATED EDMONSTON LIVE ANTIGEN\MUMPS VIRUS STRAIN B LEVEL JERYL LYNN
     Indication: Immunisation
     Route: 058
     Dates: start: 20250206, end: 20250206
  2. IMOVAX POLIO [Suspect]
     Active Substance: POLIOMYELITIS VACCINE
     Indication: Polio immunisation
     Route: 058
     Dates: start: 20250206
  3. DIPHTHERIA AND TETANUS TOXOIDS [Suspect]
     Active Substance: DIPHTHERIA AND TETANUS TOXOIDS
     Indication: Immunisation
     Route: 030
     Dates: start: 20250206, end: 20250206
  4. PROQUAD [Suspect]
     Active Substance: MEASLES VIRUS STRAIN ENDERS^ ATTENUATED EDMONSTON LIVE ANTIGEN\MUMPS VIRUS STRAIN B LEVEL JERYL LYNN
     Route: 058
     Dates: start: 20250206, end: 20250206
  5. ENGERIX-B [Suspect]
     Active Substance: HEPATITIS B VIRUS SUBTYPE ADW2 HBSAG SURFACE PROTEIN ANTIGEN
     Indication: Hepatitis B immunisation
     Route: 030
     Dates: start: 20250206, end: 20250206

REACTIONS (7)
  - Immunisation reaction [Recovered/Resolved]
  - Dizziness [Recovered/Resolved]
  - Influenza like illness [Recovered/Resolved]
  - Thrombocytopenia [Recovered/Resolved]
  - Nausea [Recovered/Resolved]
  - Injection site pain [Recovered/Resolved]
  - Vomiting [Recovered/Resolved]

NARRATIVE: CASE EVENT DATE: 20250207
